FAERS Safety Report 24638189 (Version 1)
Quarter: 2024Q4

REPORT INFORMATION
  Report Type: Spontaneous
  Country: US (occurrence: US)
  Receive Date: 20241119
  Receipt Date: 20241119
  Transmission Date: 20250114
  Serious: No
  Sender: TARO
  Company Number: US-TARO PHARMACEUTICALS USA INC.-2024TAR00508

PATIENT

DRUGS (2)
  1. MUPIROCIN [Suspect]
     Active Substance: MUPIROCIN
     Indication: Post procedural inflammation
     Dosage: UNK, BID, SPARINGLY TO SPOTS ON HANDS, TO SPOTS ON HANDS
     Route: 061
     Dates: start: 20240411, end: 20240415
  2. MUPIROCIN [Suspect]
     Active Substance: MUPIROCIN
     Indication: Post procedural erythema

REACTIONS (1)
  - Dizziness [Recovered/Resolved]
